FAERS Safety Report 9792855 (Version 14)
Quarter: 2016Q1

REPORT INFORMATION
  Report Type: Report from Study
  Country: US (occurrence: US)
  Receive Date: 20140102
  Receipt Date: 20160108
  Transmission Date: 20160526
  Serious: Yes (Other)
  Sender: FDA-Public Use
  Company Number: US-SA-2013SA117240

PATIENT
  Age: 63 Year
  Sex: Female

DRUGS (15)
  1. AMLODIPINE BESILATE/ATORVASTATIN CALCIUM [Concomitant]
  2. DICLOFENAC POTASSIUM. [Concomitant]
     Active Substance: DICLOFENAC POTASSIUM
  3. VITAMIN B12 [Concomitant]
     Active Substance: CYANOCOBALAMIN
  4. METFORMIN HYDROCHLORIDE. [Concomitant]
     Active Substance: METFORMIN HYDROCHLORIDE
  5. AMBIEN [Concomitant]
     Active Substance: ZOLPIDEM TARTRATE
  6. CALCIUM [Concomitant]
     Active Substance: CALCIUM
  7. BENICAR HCT [Concomitant]
     Active Substance: HYDROCHLOROTHIAZIDE\OLMESARTAN MEDOXOMIL
  8. AMPYRA [Concomitant]
     Active Substance: DALFAMPRIDINE
  9. FENOFIBRATE. [Concomitant]
     Active Substance: FENOFIBRATE
     Dosage: NANO
  10. AUBAGIO [Suspect]
     Active Substance: TERIFLUNOMIDE
     Indication: MULTIPLE SCLEROSIS
     Route: 048
     Dates: start: 20130708
  11. OXYBUTYNIN [Concomitant]
     Active Substance: OXYBUTYNIN
  12. GABAPENTIN. [Concomitant]
     Active Substance: GABAPENTIN
  13. FERROUS SULFATE [Concomitant]
     Active Substance: FERROUS SULFATE\FERROUS SULFATE, DRIED
  14. TYLENOL [Concomitant]
     Active Substance: ACETAMINOPHEN
  15. VITAMIN D [Concomitant]
     Active Substance: CHOLECALCIFEROL

REACTIONS (23)
  - Fracture [Unknown]
  - Multiple sclerosis [Unknown]
  - Burning sensation [Unknown]
  - Fall [Unknown]
  - Lethargy [Unknown]
  - Peroneal nerve palsy [Unknown]
  - Nervous system disorder [Unknown]
  - Gastrointestinal disorder [Recovered/Resolved]
  - General physical health deterioration [Unknown]
  - Limb discomfort [Unknown]
  - Hip arthroplasty [Unknown]
  - Asthenia [Unknown]
  - Muscular weakness [Unknown]
  - Intervertebral disc protrusion [Unknown]
  - Alopecia [Recovered/Resolved]
  - Pain [Unknown]
  - Mobility decreased [Not Recovered/Not Resolved]
  - Carpal tunnel syndrome [Unknown]
  - Optic neuritis [Unknown]
  - Balance disorder [Unknown]
  - Mobility decreased [Unknown]
  - Pain in extremity [Unknown]
  - Balance disorder [Not Recovered/Not Resolved]

NARRATIVE: CASE EVENT DATE: 201401
